FAERS Safety Report 5732472-4 (Version None)
Quarter: 2008Q2

REPORT INFORMATION
  Report Type: 
  Country: None (occurrence: None)
  Receive Date: 20080507
  Receipt Date: 20080425
  Transmission Date: 20081010
  Serious: Yes (Other)
  Sender: FDA-Public Use
  Company Number: 107#08#2008-02426

PATIENT
  Age: 55 Year
  Sex: Male

DRUGS (1)
  1. AMIODARONE HCL [Suspect]
     Indication: DRUG USE FOR UNKNOWN INDICATION
     Dosage: 200 MG ORAL
     Route: 048

REACTIONS (6)
  - ATRIAL FIBRILLATION [None]
  - CHEST X-RAY ABNORMAL [None]
  - COUGH [None]
  - LUNG INJURY [None]
  - PYREXIA [None]
  - RALES [None]
